FAERS Safety Report 19050852 (Version 1)
Quarter: 2021Q1

REPORT INFORMATION
  Report Type: Spontaneous
  Country: DE (occurrence: DE)
  Receive Date: 20210324
  Receipt Date: 20210324
  Transmission Date: 20210420
  Serious: Yes (Hospitalization, Disabling, Other)
  Sender: FDA-Public Use
  Company Number: DE-STEMLINE THERAPEUTICS, INC.-2021ST000010

PATIENT
  Age: 73 Year
  Sex: Male

DRUGS (2)
  1. ELZONRIS [Suspect]
     Active Substance: TAGRAXOFUSP-ERZS
     Indication: BLASTIC PLASMACYTOID DENDRITIC CELL NEOPLASIA
     Dosage: DAY 1 TO DAY 5 OF A 21?DAY CYCLE
     Route: 042
     Dates: start: 20200904, end: 20210219
  2. VIDAZA [Concomitant]
     Active Substance: AZACITIDINE
     Indication: PRODUCT USED FOR UNKNOWN INDICATION
     Dates: start: 20200817, end: 20210223

REACTIONS (7)
  - Fall [Recovered/Resolved]
  - Hypotension [Unknown]
  - Tachycardia [Unknown]
  - Disease progression [Not Recovered/Not Resolved]
  - Asthenia [Unknown]
  - Thrombocytopenia [Unknown]
  - Disorientation [Unknown]
